FAERS Safety Report 18305344 (Version 1)
Quarter: 2020Q3

REPORT INFORMATION
  Report Type: Spontaneous
  Country: GB (occurrence: GB)
  Receive Date: 20200924
  Receipt Date: 20200924
  Transmission Date: 20201103
  Serious: Yes (Other)
  Sender: FDA-Public Use
  Company Number: GB-TEVA-2020-GB-1829678

PATIENT
  Age: 53 Year
  Sex: Female
  Weight: 91 kg

DRUGS (8)
  1. FEMSEVEN [Concomitant]
     Dosage: USE AS DIRECTED? APPLY TO CLEAN, DRY SKIN.
     Dates: start: 20190611
  2. MIRABEGRON [Concomitant]
     Active Substance: MIRABEGRON
     Dosage: 1 DOSAGE FORM
     Dates: start: 20190628
  3. DOCUSATE SODIUM. [Concomitant]
     Active Substance: DOCUSATE SODIUM
     Dosage: 4 DOSAGE FORMS
     Dates: start: 20190628
  4. CALCIUM CARBONATE. [Concomitant]
     Active Substance: CALCIUM CARBONATE
     Dosage: 2 DOSAGE FORMS
     Dates: start: 20190628
  5. BISACODYL. [Concomitant]
     Active Substance: BISACODYL
     Dosage: 3 DOSAGE FORMS
     Dates: start: 20200811
  6. SOLIFENACIN [Suspect]
     Active Substance: SOLIFENACIN
     Dosage: 1 DOSAGE FORMS DAILY; EACH NIGHT
     Route: 048
     Dates: start: 20200818
  7. OXYBUTYNIN. [Concomitant]
     Active Substance: OXYBUTYNIN CHLORIDE
     Dosage: 1 DOSAGE FORM
     Dates: start: 20200804
  8. HYDROXOCOBALAMIN [Concomitant]
     Active Substance: HYDROXOCOBALAMIN
     Dosage: 1 ML
     Route: 030
     Dates: start: 20190722

REACTIONS (3)
  - Oral pain [Unknown]
  - Oral mucosal eruption [Recovered/Resolved]
  - Lip swelling [Unknown]

NARRATIVE: CASE EVENT DATE: 20200820
